FAERS Safety Report 6983757-5 (Version None)
Quarter: 2010Q3

REPORT INFORMATION
  Report Type: 
  Country: None (occurrence: None)
  Receive Date: 20100914
  Receipt Date: 20090205
  Transmission Date: 20110219
  Serious: No
  Sender: FDA-Public Use
  Company Number: US-WYE-H08107609

PATIENT
  Age: 49 Year
  Sex: Male
  Weight: 93.07 kg

DRUGS (3)
  1. ADVIL LIQUI-GELS [Suspect]
     Indication: HEADACHE
     Dosage: 1 LIQUI-GEL AS NEEDED
     Route: 048
     Dates: start: 20040101
  2. ADVIL LIQUI-GELS [Suspect]
     Indication: BACK PAIN
  3. ONE-A-DAY [Concomitant]

REACTIONS (2)
  - INCORRECT DOSE ADMINISTERED [None]
  - SOMNOLENCE [None]
